FAERS Safety Report 18792743 (Version 4)
Quarter: 2021Q1

REPORT INFORMATION
  Report Type: Spontaneous
  Country: US (occurrence: US)
  Receive Date: 20210127
  Receipt Date: 20210212
  Transmission Date: 20210419
  Serious: Yes (Death, Life-Threatening, Hospitalization)
  Sender: FDA-Public Use
  Company Number: US-CELGENEUS-USA-20210105526

PATIENT
  Age: 51 Year
  Sex: Female
  Weight: 73.09 kg

DRUGS (1)
  1. REVLIMID [Suspect]
     Active Substance: LENALIDOMIDE
     Indication: PLASMA CELL MYELOMA
     Dosage: 25 MILLIGRAM
     Route: 048
     Dates: start: 20200709

REACTIONS (4)
  - Plasma cell myeloma [Unknown]
  - Death [Fatal]
  - COVID-19 [Unknown]
  - Liver disorder [Unknown]

NARRATIVE: CASE EVENT DATE: 20210201
